FAERS Safety Report 13031976 (Version 4)
Quarter: 2017Q1

REPORT INFORMATION
  Report Type: Spontaneous
  Country: CA (occurrence: CA)
  Receive Date: 20161215
  Receipt Date: 20170216
  Transmission Date: 20170428
  Serious: Yes (Other)
  Sender: FDA-Public Use
  Company Number: CA-CELLTRION INC.-2016CA010620

PATIENT

DRUGS (4)
  1. INFLECTRA [Suspect]
     Active Substance: INFLIXIMAB-DYYB
     Dosage: 620 MG, CYCLIC, EVERY 0 2, 6 WEEKS, THEN EVERY 8 WEEKS FOR 12 MONTHS
     Route: 042
  2. ASACOL [Concomitant]
     Active Substance: MESALAMINE
     Dosage: UNK, DAILY
     Route: 048
  3. INFLECTRA [Suspect]
     Active Substance: INFLIXIMAB-DYYB
     Indication: COLITIS ULCERATIVE
     Dosage: 300MG EVERY 0,2,6, WEEKS, THEN EVERY 8 WEEKS FOR 12 MONTHS
     Route: 042
     Dates: start: 20160822
  4. INFLECTRA [Suspect]
     Active Substance: INFLIXIMAB-DYYB
     Dosage: 300MG EVERY 0,2,6, WEEKS, THEN EVERY 8 WEEKS FOR 12 MONTHS
     Route: 042

REACTIONS (13)
  - Nasopharyngitis [Unknown]
  - Rectal haemorrhage [Unknown]
  - Condition aggravated [Recovered/Resolved]
  - Frequent bowel movements [Unknown]
  - Malaise [Not Recovered/Not Resolved]
  - Pain [Unknown]
  - Oxygen saturation decreased [Unknown]
  - Inappropriate schedule of drug administration [Unknown]
  - Paraesthesia [Unknown]
  - Drug effect decreased [Unknown]
  - Pneumonia [Unknown]
  - C-reactive protein increased [Recovering/Resolving]
  - Haematochezia [Unknown]

NARRATIVE: CASE EVENT DATE: 2016
